FAERS Safety Report 13017927 (Version 2)
Quarter: 2016Q4

REPORT INFORMATION
  Report Type: Spontaneous
  Country: US (occurrence: US)
  Receive Date: 20161212
  Receipt Date: 20161229
  Transmission Date: 20170207
  Serious: Yes (Hospitalization, Other)
  Sender: FDA-Public Use
  Company Number: US-ACADIA PHARMACEUTICALS INC.-ACA-2016-001485

PATIENT
  Age: 86 Year
  Sex: Female
  Weight: 74.83 kg

DRUGS (2)
  1. SINEMET [Concomitant]
     Active Substance: CARBIDOPA\LEVODOPA
     Indication: PRODUCT USED FOR UNKNOWN INDICATION
  2. NUPLAZID [Suspect]
     Active Substance: PIMAVANSERIN TARTRATE
     Indication: PARKINSON^S DISEASE PSYCHOSIS
     Dosage: 34 MG, QD
     Route: 048
     Dates: start: 20161110, end: 2016

REACTIONS (5)
  - Depressed level of consciousness [Unknown]
  - Abasia [Unknown]
  - Urinary tract infection [Unknown]
  - Dementia [Unknown]
  - Dysstasia [Unknown]

NARRATIVE: CASE EVENT DATE: 2016
